FAERS Safety Report 12828460 (Version 1)
Quarter: 2016Q4

REPORT INFORMATION
  Report Type: Spontaneous
  Country: RU (occurrence: RU)
  Receive Date: 20161007
  Receipt Date: 20161007
  Transmission Date: 20170207
  Serious: Yes (Other)
  Sender: FDA-Public Use
  Company Number: RU-ASTRAZENECA-2016SF05693

PATIENT
  Age: 63 Year
  Sex: Male
  Weight: 75 kg

DRUGS (8)
  1. NORMODIPINE [Concomitant]
     Active Substance: AMLODIPINE BESYLATE
     Dosage: 10.0MG UNKNOWN
  2. LISINOPRIL. [Concomitant]
     Active Substance: LISINOPRIL
     Dates: end: 201609
  3. OMEZ [Concomitant]
     Active Substance: OMEPRAZOLE
  4. INDAPAMIDE. [Concomitant]
     Active Substance: INDAPAMIDE
  5. ATORIS [Concomitant]
     Active Substance: ATORVASTATIN CALCIUM
     Dosage: 40.0MG UNKNOWN
  6. BRILINTA [Suspect]
     Active Substance: TICAGRELOR
     Indication: MYOCARDIAL INFARCTION
     Route: 048
     Dates: start: 201603
  7. CONCOR [Concomitant]
     Active Substance: BISOPROLOL FUMARATE
     Dosage: 1.25MG UNKNOWN
  8. THROMBO ASS [Concomitant]
     Active Substance: ASPIRIN
     Dosage: 100.0MG UNKNOWN

REACTIONS (1)
  - Hypertensive crisis [Recovered/Resolved]

NARRATIVE: CASE EVENT DATE: 201609
